FAERS Safety Report 16325460 (Version 2)
Quarter: 2019Q2

REPORT INFORMATION
  Report Type: Report from Study
  Country: US (occurrence: US)
  Receive Date: 20190517
  Receipt Date: 20190520
  Transmission Date: 20190711
  Serious: Yes (Death)
  Sender: FDA-Public Use
  Company Number: US-PFIZER INC-2019208412

PATIENT
  Age: 46 Year

DRUGS (12)
  1. BLEOMYCIN SULFATE [Suspect]
     Active Substance: BLEOMYCIN SULFATE
     Indication: HODGKIN^S DISEASE
     Dosage: UNK, CYCLIC ( 6X, INDUCTION CHEMOTHERAPY)HIGH-DOSE
  2. CYTARABINE. [Suspect]
     Active Substance: CYTARABINE
     Indication: HODGKIN^S DISEASE
     Dosage: UNK, CYCLIC (SALVAGE CHEMOTHERAPY 3 CYCLES)HIGH-DOSE
  3. METHYLPREDNISOLONE ACETATE. [Suspect]
     Active Substance: METHYLPREDNISOLONE ACETATE
     Indication: HODGKIN^S DISEASE
     Dosage: UNK, CYCLIC (SALVAGE CHEMOTHERAPY 3 CYCLES)HIGH-DOSE
  4. ETOPOSIDE. [Suspect]
     Active Substance: ETOPOSIDE
     Indication: HODGKIN^S DISEASE
     Dosage: UNK, CYCLIC (SALVAGE CHEMOTHERAPY, 3 CYCLES)HIGH-DOSE
  5. NITROGEN MUSTARD [Suspect]
     Active Substance: MECHLORETHAMINE OXIDE HYDROCHLORIDE
     Indication: HODGKIN^S DISEASE
     Dosage: UNK, CYCLIC (SALVAGE CHEMOTHERAPY 2 CYCLES)HIGH-DOSE
  6. DOXORUBICIN HCL [Suspect]
     Active Substance: DOXORUBICIN HYDROCHLORIDE
     Indication: HODGKIN^S DISEASE
     Dosage: UNK, CYCLIC (6X, INDUCTION CHEMOTHERAPY, CYCLES)HIGH-DOSE
  7. CISPLATIN. [Suspect]
     Active Substance: CISPLATIN
     Indication: HODGKIN^S DISEASE
     Dosage: UNK, CYCLIC (SALVAGE CHEMOTHERAPY 3 CYCLES)HIGH-DOSE
  8. PREDNISONE. [Suspect]
     Active Substance: PREDNISONE
     Indication: HODGKIN^S DISEASE
     Dosage: UNK, CYCLIC (SALVAGE CHEMOTHERAPY 2 CYCLES)HIGH-DOSE
  9. DACARBAZINE. [Suspect]
     Active Substance: DACARBAZINE
     Indication: HODGKIN^S DISEASE
     Dosage: UNK, CYCLIC (6X, INDUCTION CHEMOTHERAPY)HIGH-DOSE
  10. VINBLASTINE [Suspect]
     Active Substance: VINBLASTINE
     Indication: HODGKIN^S DISEASE
     Dosage: UNK, CYCLIC(6X, INDUCTION CHEMOTHERAPY)HIGH-DOSE
  11. VINCRISTINE SULFATE. [Suspect]
     Active Substance: VINCRISTINE SULFATE
     Indication: HODGKIN^S DISEASE
     Dosage: UNK, CYCLIC (SALVAGE CHEMOTHERAPY, 2 CYCLES)HIGH-DOSE
  12. PROCARBAZINE [Suspect]
     Active Substance: PROCARBAZINE
     Indication: HODGKIN^S DISEASE
     Dosage: UNK, CYCLIC (SALVAGE CHEMOTHERAPY 2 CYCLES)HIGH-DOSE

REACTIONS (2)
  - Acute myeloid leukaemia [Fatal]
  - Second primary malignancy [Fatal]
